FAERS Safety Report 10404157 (Version 1)
Quarter: 2014Q1

REPORT INFORMATION
  Report Type: Spontaneous
  Country: US (occurrence: None)
  Receive Date: 20130916
  Receipt Date: 20130916
  Transmission Date: 20141002
  Serious: Yes (Other)
  Sender: FDA-Public Use
  Company Number: JPI-P-030585

PATIENT
  Age: 23 Year
  Sex: Female
  Weight: 65.77 kg

DRUGS (2)
  1. XYREM (500 MILLIGRAM/MILLILITERS, SOLUTION) (SODIUM OXYBATE) [Suspect]
     Indication: NARCOLEPSY
     Route: 048
     Dates: start: 201208
  2. RITALIN (METHYLPHENIDATE) [Concomitant]

REACTIONS (1)
  - Weight decreased [None]
